FAERS Safety Report 6648626-9 (Version None)
Quarter: 2010Q1

REPORT INFORMATION
  Report Type: 
  Country: None (occurrence: None)
  Receive Date: 20100324
  Receipt Date: 20090603
  Transmission Date: 20100710
  Serious: Yes (Death, Life-Threatening, Hospitalization, Other)
  Sender: FDA-Public Use
  Company Number: ES-SANOFI-AVENTIS-F01200701223

PATIENT
  Age: 48 Year
  Sex: Female
  Weight: 55 kg

DRUGS (9)
  1. OXALIPLATIN [Suspect]
     Indication: GASTRIC CANCER
     Dosage: UNIT DOSE: 85 MG/M2
     Route: 041
     Dates: start: 20070910, end: 20070910
  2. DOCETAXEL [Suspect]
     Dosage: UNIT DOSE: 35 MG/M2
     Route: 042
     Dates: start: 20070910, end: 20070910
  3. FLUOROURACIL [Suspect]
     Dosage: UNIT DOSE: 1200 MG/M2
     Route: 042
     Dates: start: 20070910, end: 20070912
  4. IBUPROFENO ^FABRA^ [Concomitant]
     Indication: PAIN
     Route: 048
     Dates: start: 20070727, end: 20070915
  5. RABEPRAZOLE SODIUM [Concomitant]
     Indication: GASTRITIS
     Dosage: UNIT DOSE: 20 MG
     Route: 048
     Dates: start: 20070810, end: 20070915
  6. BOREA [Concomitant]
     Dosage: DOSE TEXT: 5 COMP (SIC)
     Route: 048
     Dates: start: 20070629, end: 20070918
  7. FERRUM ORAL ^LEK^ [Concomitant]
     Dosage: DOSE TEXT: 3 COMP (SIC)
     Route: 048
     Dates: start: 20061020, end: 20070918
  8. REXER [Concomitant]
     Indication: DEPRESSION
     Dosage: UNIT DOSE: 30 MG
     Route: 048
     Dates: start: 20070706, end: 20070918
  9. LIORESAL [Concomitant]
     Indication: HICCUPS
     Dosage: DOSE TEXT: 3 COMP. (SIC)
     Route: 048
     Dates: start: 20070907, end: 20070918

REACTIONS (1)
  - EMPYEMA [None]
